FAERS Safety Report 16871825 (Version 4)
Quarter: 2019Q4

REPORT INFORMATION
  Report Type: Spontaneous
  Country: AU (occurrence: AU)
  Receive Date: 20191001
  Receipt Date: 20191107
  Transmission Date: 20200122
  Serious: Yes (Other)
  Sender: FDA-Public Use
  Company Number: AU-CELLTRION INC.-2019AU025218

PATIENT

DRUGS (2)
  1. INFLIXIMAB PFIZER (UNKNOWN) [Suspect]
     Active Substance: INFLIXIMAB
     Dosage: UNK
     Dates: start: 201607, end: 201708
  2. REMICADE [Suspect]
     Active Substance: INFLIXIMAB
     Dosage: UNK
     Dates: start: 201607, end: 201708

REACTIONS (5)
  - Serum ferritin decreased [Unknown]
  - Haemoglobin decreased [Unknown]
  - Drug specific antibody [Unknown]
  - Drug level decreased [Unknown]
  - Infusion related reaction [Unknown]
